FAERS Safety Report 6724479-5 (Version None)
Quarter: 2010Q2

REPORT INFORMATION
  Report Type: 
  Country: None (occurrence: None)
  Receive Date: 20100513
  Receipt Date: 20100426
  Transmission Date: 20101027
  Serious: Yes (Other)
  Sender: FDA-Public Use
  Company Number: US-PURDUE-USA-2010-0043565

PATIENT
  Age: 59 Year
  Sex: Female

DRUGS (1)
  1. BETADINE [Suspect]
     Indication: DRUG USE FOR UNKNOWN INDICATION

REACTIONS (10)
  - BURN OESOPHAGEAL [None]
  - CANDIDIASIS [None]
  - HERPES ZOSTER [None]
  - LUNG INFECTION [None]
  - NASAL DISCOMFORT [None]
  - ORAL DISCOMFORT [None]
  - PRODUCTIVE COUGH [None]
  - RHINORRHOEA [None]
  - SPUTUM ABNORMAL [None]
  - THROAT IRRITATION [None]
